FAERS Safety Report 9507727 (Version 1)
Quarter: 2013Q3

REPORT INFORMATION
  Report Type: Spontaneous
  Country: IT (occurrence: IT)
  Receive Date: 20130909
  Receipt Date: 20130909
  Transmission Date: 20140515
  Serious: Yes (Hospitalization)
  Sender: FDA-Public Use
  Company Number: IT-NOVOPROD-386759

PATIENT
  Age: 83 Year
  Sex: Female

DRUGS (4)
  1. NOVONORM [Suspect]
     Indication: TYPE 2 DIABETES MELLITUS
     Dosage: 3 TAB, QD
     Route: 048
     Dates: start: 20090401, end: 20130809
  2. ACIDO ACETILSALICILICO [Concomitant]
     Dosage: UNK
     Route: 065
  3. CATAPRESAN                         /00171101/ [Concomitant]
     Dosage: 2.5MG (TRANSDERMAL PATCH)
     Route: 062
  4. XANAX [Concomitant]
     Dosage: 1.25 MG
     Route: 048

REACTIONS (2)
  - Hypoglycaemia [Recovered/Resolved]
  - Dizziness [Recovered/Resolved]
